FAERS Safety Report 9682531 (Version 1)
Quarter: 2013Q4

REPORT INFORMATION
  Report Type: Report from Study
  Country: KR (occurrence: KR)
  Receive Date: 20131112
  Receipt Date: 20131112
  Transmission Date: 20140711
  Serious: Yes (Other)
  Sender: FDA-Public Use
  Company Number: KR-ROCHE-1301103

PATIENT
  Sex: 0

DRUGS (6)
  1. CAPECITABINE [Suspect]
     Indication: LARYNGEAL SQUAMOUS CELL CARCINOMA
     Route: 048
  2. CAPECITABINE [Suspect]
     Indication: SQUAMOUS CELL CARCINOMA OF THE HYPOPHARYNX
  3. CISPLATIN [Suspect]
     Indication: LARYNGEAL SQUAMOUS CELL CARCINOMA
     Dosage: 1 H INTRAVENOUS INFUSION ON THE FIRST DAY OF EACH CYCLE
     Route: 042
  4. CISPLATIN [Suspect]
     Indication: SQUAMOUS CELL CARCINOMA OF THE HYPOPHARYNX
  5. PYRIDOXINE [Suspect]
     Indication: LARYNGEAL SQUAMOUS CELL CARCINOMA
     Dosage: ON DAYS 1-14 AND A 7 DAY REST PERIOD ON DAYS 15-21
     Route: 048
  6. PYRIDOXINE [Suspect]
     Indication: SQUAMOUS CELL CARCINOMA OF THE HYPOPHARYNX

REACTIONS (9)
  - Anaemia [Unknown]
  - Leukopenia [Unknown]
  - Neutropenia [Unknown]
  - Nausea [Unknown]
  - Vomiting [Unknown]
  - Mucosal inflammation [Unknown]
  - Diarrhoea [Unknown]
  - Palmar-plantar erythrodysaesthesia syndrome [Unknown]
  - Thrombocytopenia [Unknown]
